FAERS Safety Report 25989715 (Version 2)
Quarter: 2025Q4

REPORT INFORMATION
  Report Type: Spontaneous
  Country: US (occurrence: US)
  Receive Date: 20251103
  Receipt Date: 20251105
  Transmission Date: 20260119
  Serious: Yes (Life-Threatening, Hospitalization, Other)
  Sender: PFIZER
  Company Number: US-MLMSERVICE-20251023-PI686915-00229-1

PATIENT
  Age: 66 Year
  Sex: Male

DRUGS (1)
  1. MORPHINE SULFATE [Suspect]
     Active Substance: MORPHINE SULFATE
     Dosage: LONG-TERM OPIOID USE/CHRONIC OPIOID USE

REACTIONS (11)
  - Acute respiratory failure [Recovering/Resolving]
  - Aspiration [Recovering/Resolving]
  - Lactic acidosis [Recovering/Resolving]
  - Pneumonia aspiration [Recovering/Resolving]
  - Faecaloma [Recovering/Resolving]
  - Colitis ischaemic [Recovering/Resolving]
  - Intestinal dilatation [Recovering/Resolving]
  - Constipation [Recovering/Resolving]
  - Septic shock [Recovering/Resolving]
  - Leukopenia [Recovering/Resolving]
  - Acute kidney injury [Recovering/Resolving]
